FAERS Safety Report 9305087 (Version 2)
Quarter: 2013Q1

REPORT INFORMATION
  Report Type: Spontaneous
  Country: DK (occurrence: None)
  Receive Date: 20130204
  Receipt Date: 20130206
  Transmission Date: 20140127
  Serious: Yes (Death, Other)
  Sender: FDA-Public Use
  Company Number: 2012-20833

PATIENT
  Age: 64 Year
  Sex: Female

DRUGS (9)
  1. PACLITAXEL [Suspect]
     Indication: PRODUCT USED FOR UNKNOWN INDICATION
  2. VINORELBINE [Suspect]
     Indication: PRODUCT USED FOR UNKNOWN INDICATION
  3. LETROZOLE (LETROZOLE) [Suspect]
     Indication: PRODUCT USED FOR UNKNOWN INDICATION
  4. HERCEPTIN (TRASTUZUMAB) [Suspect]
     Indication: BREAST CANCER
  5. XELODA (CAPECITABINE) [Suspect]
     Indication: PRODUCT USED FOR UNKNOWN INDICATION
  6. ERIBULIN [Suspect]
     Indication: PRODUCT USED FOR UNKNOWN INDICATION
  7. LAPATINIB [Suspect]
     Indication: PRODUCT USED FOR UNKNOWN INDICATION
  8. EPIRUBICIN (EPIRUBICIN) (EPIRUBICIN) [Concomitant]
  9. CYCLOPHOSPHAMIDE (CYCLOPHOSPHAMIDE) [Concomitant]

REACTIONS (7)
  - Malignant neoplasm progression [None]
  - Sensory disturbance [None]
  - Superior vena cava syndrome [None]
  - Tenderness [None]
  - Fracture [None]
  - Breast cancer metastatic [None]
  - Metastases to bone [None]
